FAERS Safety Report 7912565-3 (Version None)
Quarter: 2011Q4

REPORT INFORMATION
  Report Type: 
  Country: None (occurrence: None)
  Receive Date: 20111114
  Receipt Date: 20111111
  Transmission Date: 20120403
  Serious: No
  Sender: FDA-Public Use
  Company Number: US-PFIZER INC-2011277276

PATIENT
  Sex: Male

DRUGS (2)
  1. CELEBREX [Suspect]
     Dosage: UNK
     Route: 048
  2. RITONAVIR [Suspect]
     Indication: HIV TEST POSITIVE
     Dosage: UNK

REACTIONS (2)
  - HEART RATE INCREASED [None]
  - THERAPEUTIC RESPONSE UNEXPECTED [None]
